FAERS Safety Report 5364271-X (Version None)
Quarter: 2007Q2

REPORT INFORMATION
  Report Type: 
  Country: None (occurrence: None)
  Receive Date: 20070620
  Receipt Date: 20070608
  Transmission Date: 20071010
  Serious: Yes (Other)
  Sender: FDA-Public Use
  Company Number: DO-GENENTECH-242728

PATIENT
  Sex: Male

DRUGS (1)
  1. XOLAIR [Suspect]
     Indication: ASTHMA
     Dosage: 150 MG, UNK
     Dates: start: 20070523

REACTIONS (4)
  - BLOOD IMMUNOGLOBULIN E INCREASED [None]
  - BRONCHOSPASM [None]
  - HYPERSENSITIVITY [None]
  - RHINITIS [None]
